FAERS Safety Report 12441316 (Version 3)
Quarter: 2016Q3

REPORT INFORMATION
  Report Type: Report from Study
  Country: US (occurrence: US)
  Receive Date: 20160607
  Receipt Date: 20160901
  Transmission Date: 20161109
  Serious: No
  Sender: FDA-Public Use
  Company Number: PHEH2016US013129

PATIENT
  Age: 49 Year
  Sex: Female

DRUGS (2)
  1. COSENTYX [Suspect]
     Active Substance: SECUKINUMAB
     Dosage: 300 MG, QW
     Route: 058
     Dates: start: 20160507
  2. COSENTYX [Suspect]
     Active Substance: SECUKINUMAB
     Indication: PSORIASIS
     Dosage: 300 MG, QMO
     Route: 058
     Dates: start: 20160429

REACTIONS (5)
  - Injection site haemorrhage [Recovering/Resolving]
  - Injection site swelling [Recovering/Resolving]
  - Inappropriate schedule of drug administration [Unknown]
  - Bacterial infection [Unknown]
  - Vascular injury [Recovering/Resolving]

NARRATIVE: CASE EVENT DATE: 20160521
